FAERS Safety Report 6961818-4 (Version None)
Quarter: 2010Q3

REPORT INFORMATION
  Report Type: 
  Country: None (occurrence: None)
  Receive Date: 20100901
  Receipt Date: 20100823
  Transmission Date: 20110219
  Serious: Yes (Hospitalization, Other)
  Sender: FDA-Public Use
  Company Number: US-ABBOTT-10P-163-0652493-00

PATIENT
  Sex: Female
  Weight: 72.64 kg

DRUGS (7)
  1. HUMIRA [Suspect]
     Indication: RHEUMATOID ARTHRITIS
     Dates: start: 20020101, end: 20050101
  2. HUMIRA [Suspect]
     Dates: start: 20050101, end: 20100519
  3. HUMIRA [Suspect]
     Dates: start: 20100725
  4. MIRAPEX [Suspect]
     Indication: RESTLESS LEGS SYNDROME
     Route: 048
  5. AMBIEN [Concomitant]
     Indication: INSOMNIA
     Route: 048
  6. FISH OIL [Concomitant]
     Indication: PRODUCT USED FOR UNKNOWN INDICATION
  7. ALEVE (CAPLET) [Concomitant]
     Indication: PRODUCT USED FOR UNKNOWN INDICATION

REACTIONS (10)
  - ARTHRALGIA [None]
  - FEELING HOT [None]
  - FOOT DEFORMITY [None]
  - HEADACHE [None]
  - JOINT DISLOCATION [None]
  - JOINT SWELLING [None]
  - PAIN [None]
  - PAIN IN EXTREMITY [None]
  - RHEUMATOID ARTHRITIS [None]
  - RHEUMATOID NODULE [None]
